FAERS Safety Report 24277159 (Version 6)
Quarter: 2025Q1

REPORT INFORMATION
  Report Type: Report from Study
  Country: US (occurrence: US)
  Receive Date: 20240903
  Receipt Date: 20250130
  Transmission Date: 20250408
  Serious: Yes (Other)
  Sender: MERCK
  Company Number: US-009507513-2408USA009640

PATIENT
  Sex: Female
  Weight: 99.8 kg

DRUGS (27)
  1. SOTATERCEPT [Suspect]
     Active Substance: SOTATERCEPT
     Indication: Pulmonary arterial hypertension
     Dosage: 0.6 MILLILITER, Q3W; STRENGTH: 45 MG
     Route: 058
     Dates: start: 2024
  2. WINREVAIR [Suspect]
     Active Substance: SOTATERCEPT-CSRK
     Indication: Pulmonary arterial hypertension
     Dosage: 1.4 MILLILITER, Q3W
     Route: 058
     Dates: start: 2024, end: 2024
  3. TYVASO [Suspect]
     Active Substance: TREPROSTINIL
     Indication: Pulmonary arterial hypertension
     Dosage: 16 MICROGRAM, QID; FORMULATION: DRY POWDER
     Dates: start: 2024
  4. TYVASO DPI [Suspect]
     Active Substance: TREPROSTINIL
     Indication: Pulmonary arterial hypertension
     Dosage: 16 MICROGRAM, QID; FORMULATION: DRY POWDER
     Dates: start: 20240405
  5. OPSUMIT [Concomitant]
     Active Substance: MACITENTAN
  6. RESTASIS [Concomitant]
     Active Substance: CYCLOSPORINE
  7. SENNA S [Concomitant]
     Active Substance: DOCUSATE SODIUM\SENNOSIDES
  8. BENADRYL ITCH STOPPING GEL MAXIMUM STRENGTH [Concomitant]
     Indication: Pruritus
  9. LASIX [Concomitant]
     Active Substance: FUROSEMIDE
  10. PROTONIX [Concomitant]
     Active Substance: PANTOPRAZOLE SODIUM
  11. KETOCONAZOLE [Concomitant]
     Active Substance: KETOCONAZOLE
  12. LORADAMED [Concomitant]
  13. AMMONIUM LACTATE [Concomitant]
     Active Substance: AMMONIUM LACTATE
  14. TRIAMCINOLONE [Concomitant]
     Active Substance: TRIAMCINOLONE
  15. HYPROMELLOSE, UNSPECIFIED [Concomitant]
     Active Substance: HYPROMELLOSE, UNSPECIFIED
  16. PEPTO-BISMOL [Concomitant]
     Active Substance: BISMUTH SUBSALICYLATE
  17. TRETINOIN [Concomitant]
     Active Substance: TRETINOIN
  18. SULFACETAMIDE SODIUM [Concomitant]
     Active Substance: SULFACETAMIDE SODIUM
  19. SPIRONOLACTONE [Concomitant]
     Active Substance: SPIRONOLACTONE
  20. FOLIC ACID [Concomitant]
     Active Substance: FOLIC ACID
  21. OXYGEN [Concomitant]
     Active Substance: OXYGEN
  22. MAALOX ADVANCED [CALCIUM CARBONATE;SIMETICONE] [Concomitant]
  23. DIGOXIN [Concomitant]
     Active Substance: DIGOXIN
  24. ACETAMINOPHEN [Concomitant]
     Active Substance: ACETAMINOPHEN
  25. ZOFRAN [Concomitant]
     Active Substance: ONDANSETRON HYDROCHLORIDE
  26. TAPAZOLE [Concomitant]
     Active Substance: METHIMAZOLE
  27. METHIMAZOLE [Concomitant]
     Active Substance: METHIMAZOLE

REACTIONS (8)
  - Haematochezia [Unknown]
  - Pain in extremity [Unknown]
  - Product colour issue [Unknown]
  - Myalgia [Not Recovered/Not Resolved]
  - Rash erythematous [Unknown]
  - Abdominal pain upper [Recovering/Resolving]
  - Pain in extremity [Recovering/Resolving]
  - Arthralgia [Recovering/Resolving]

NARRATIVE: CASE EVENT DATE: 20240101
